FAERS Safety Report 10335465 (Version 1)
Quarter: 2014Q3

REPORT INFORMATION
  Report Type: Spontaneous
  Country: US (occurrence: None)
  Receive Date: 20140722
  Receipt Date: 20140722
  Transmission Date: 20150326
  Serious: Yes (Disabling)
  Sender: FDA-Public Use
  Company Number: None

PATIENT
  Age: 37 Year
  Sex: Male
  Weight: 108.86 kg

DRUGS (1)
  1. CIPRO [Suspect]
     Active Substance: CIPROFLOXACIN HYDROCHLORIDE
     Indication: EPIDIDYMITIS
     Dosage: 1 PILL  TWICE DAILY  TAKEN BY MOUTH
     Route: 048
     Dates: start: 20140626, end: 20140707

REACTIONS (12)
  - Anxiety [None]
  - Feeling hot [None]
  - Tendon pain [None]
  - Orthosis user [None]
  - Arthralgia [None]
  - Immobile [None]
  - Musculoskeletal pain [None]
  - Pain in extremity [None]
  - Paraesthesia [None]
  - Nervousness [None]
  - Genital paraesthesia [None]
  - Poisoning [None]

NARRATIVE: CASE EVENT DATE: 20140707
